FAERS Safety Report 6534313-4 (Version None)
Quarter: 2010Q1

REPORT INFORMATION
  Report Type: 
  Country: None (occurrence: None)
  Receive Date: 20100112
  Receipt Date: 20100107
  Transmission Date: 20100710
  Serious: No
  Sender: FDA-Public Use
  Company Number: US-BAYER-201010598NA

PATIENT
  Sex: Female

DRUGS (3)
  1. OCELLA [Suspect]
     Indication: MIGRAINE
     Dates: start: 20090101
  2. YASMIN [Suspect]
     Indication: MIGRAINE
     Route: 048
     Dates: start: 20050101
  3. YASMIN [Suspect]
     Dosage: CONTINUOUSLY
     Route: 048
     Dates: start: 20091001

REACTIONS (2)
  - AMENORRHOEA [None]
  - MIGRAINE [None]
